FAERS Safety Report 18109837 (Version 7)
Quarter: 2022Q1

REPORT INFORMATION
  Report Type: Report from Study
  Country: JP (occurrence: JP)
  Receive Date: 20200804
  Receipt Date: 20220314
  Transmission Date: 20220423
  Serious: Yes (Death, Hospitalization, Other)
  Sender: FDA-Public Use
  Company Number: JP-JNJFOC-20200802436

PATIENT
  Age: 56 Year
  Sex: Female
  Weight: 57 kg

DRUGS (14)
  1. TREMFYA [Suspect]
     Active Substance: GUSELKUMAB
     Indication: Psoriasis
     Dosage: RECEIVED DOSES ON 30-APR-2019, 02-JUL-2019, 02-SEP-2019, 19-NOV-2019, 12-FEB-2020, 24-APR-2020, 02-J
     Route: 058
     Dates: start: 20190403
  2. TREMFYA [Suspect]
     Active Substance: GUSELKUMAB
     Route: 058
  3. TREMFYA [Suspect]
     Active Substance: GUSELKUMAB
  4. GABEXATE MESYLATE [Concomitant]
     Active Substance: GABEXATE MESYLATE
     Indication: Pancreatitis acute
     Route: 042
     Dates: start: 20190428, end: 20200503
  5. MEROPENEM [Concomitant]
     Active Substance: MEROPENEM
     Indication: Pancreatitis acute
     Route: 042
     Dates: start: 20190428, end: 20200517
  6. MEROPENEM [Concomitant]
     Active Substance: MEROPENEM
     Route: 042
  7. OMEPRAZOLE [Concomitant]
     Active Substance: OMEPRAZOLE
     Indication: Pancreatitis acute
     Route: 042
     Dates: start: 20190428, end: 20200517
  8. XYZAL [Concomitant]
     Active Substance: LEVOCETIRIZINE DIHYDROCHLORIDE
     Indication: Psoriasis
     Route: 048
     Dates: start: 20190430
  9. RUPAFIN [Concomitant]
     Active Substance: RUPATADINE FUMARATE
     Indication: Psoriasis
     Dates: start: 20190701
  10. BEPOTASTINE BESYLATE [Concomitant]
     Active Substance: BEPOTASTINE BESYLATE
     Indication: Psoriasis
     Route: 048
  11. CLOBETASOL PROPIONATE [Concomitant]
     Active Substance: CLOBETASOL PROPIONATE
     Indication: Psoriasis
     Route: 061
  12. BETAMETHASONE DIPROPIONATE [Concomitant]
     Active Substance: BETAMETHASONE DIPROPIONATE
     Indication: Psoriasis
     Route: 061
  13. PROTOPIC [Concomitant]
     Active Substance: TACROLIMUS
     Indication: Psoriasis
     Route: 061
  14. BETAMETHASONE\CALCIPOTRIENE [Concomitant]
     Active Substance: BETAMETHASONE\CALCIPOTRIENE
     Indication: Psoriasis
     Dates: start: 20200212

REACTIONS (3)
  - Hepatic cirrhosis [Fatal]
  - Pancreatitis acute [Recovered/Resolved]
  - Interstitial lung disease [Recovering/Resolving]

NARRATIVE: CASE EVENT DATE: 20200424
